FAERS Safety Report 8738646 (Version 2)
Quarter: 2013Q2

REPORT INFORMATION
  Report Type: Spontaneous
  Country: GB (occurrence: GB)
  Receive Date: 20120823
  Receipt Date: 20130507
  Transmission Date: 20140414
  Serious: Yes (Other)
  Sender: FDA-Public Use
  Company Number: PHFR2012GB003419

PATIENT
  Age: 63 Year
  Sex: Female
  Weight: 49 kg

DRUGS (7)
  1. TEGRETOL-XR [Suspect]
     Dosage: 400 MG, BID
     Route: 048
  2. TEGRETOL-XR [Suspect]
     Dosage: 600 MG, UNK
     Route: 048
  3. ALENDRONIC ACID [Concomitant]
     Dosage: 70 MG, ONCE A WEEK
  4. ATENOLOL [Concomitant]
     Dosage: 100 MG, QD
  5. CALCICHEW D3 [Concomitant]
     Dosage: 2 DF, QD
  6. LEVETIRACETAM [Concomitant]
     Dosage: 250 MG, BID
  7. PERINDOPRIL [Concomitant]
     Dosage: 2 DF, AT NIGHT

REACTIONS (5)
  - Epilepsy [Not Recovered/Not Resolved]
  - Malaise [Recovered/Resolved]
  - Dysgeusia [Recovering/Resolving]
  - Drug level increased [Unknown]
  - Nausea [Recovered/Resolved]
